FAERS Safety Report 4671057-8 (Version None)
Quarter: 2005Q2

REPORT INFORMATION
  Report Type: 
  Country: None (occurrence: None)
  Receive Date: 20050523
  Receipt Date: 20050516
  Transmission Date: 20051028
  Serious: Yes (Other)
  Sender: FDA-Public Use
  Company Number: 2005S1000157

PATIENT
  Age: 40 Year
  Sex: Female

DRUGS (1)
  1. ACITRETIN (ACITRETIN) [Suspect]
     Indication: SKIN PAPILLOMA
     Dosage: PO
     Route: 048
     Dates: start: 20030701, end: 20040701

REACTIONS (6)
  - ALOPECIA [None]
  - AMENORRHOEA [None]
  - HYPOTRICHOSIS [None]
  - MENSTRUATION IRREGULAR [None]
  - NAIL DISORDER [None]
  - PREMATURE MENOPAUSE [None]
